FAERS Safety Report 4835931-1 (Version None)
Quarter: 2005Q4

REPORT INFORMATION
  Report Type: 
  Country: None (occurrence: None)
  Receive Date: 20051118
  Receipt Date: 20051109
  Transmission Date: 20060501
  Serious: Yes (Death, Life-Threatening, Hospitalization, Disabling, Other)
  Sender: FDA-Public Use
  Company Number: 430029M05USA

PATIENT
  Age: 58 Year
  Sex: Male
  Weight: 80.7403 kg

DRUGS (4)
  1. NOVANTRONE [Suspect]
     Indication: MULTIPLE SCLEROSIS
     Dosage: 24 MG, 1 IN 3 MONTHS,
     Dates: start: 20020412, end: 20040305
  2. AVONEX [Concomitant]
  3. METHOTREXATE (METHOTREXATE /00113801/) [Concomitant]
  4. BETASERON [Concomitant]

REACTIONS (2)
  - ACUTE PROMYELOCYTIC LEUKAEMIA [None]
  - CARDIAC DEATH [None]
